FAERS Safety Report 12832412 (Version 1)
Quarter: 2016Q4

REPORT INFORMATION
  Report Type: Spontaneous
  Country: US (occurrence: US)
  Receive Date: 20161010
  Receipt Date: 20161010
  Transmission Date: 20170207
  Serious: No
  Sender: FDA-Public Use
  Company Number: US-JAZZ-2016-US-013249

PATIENT
  Sex: Female

DRUGS (30)
  1. CYMBALTA [Concomitant]
     Active Substance: DULOXETINE HYDROCHLORIDE
  2. LEVOTHYROXINE. [Concomitant]
     Active Substance: LEVOTHYROXINE
  3. OXYCODONE HYDROCHLORIDE. [Concomitant]
     Active Substance: OXYCODONE HYDROCHLORIDE
  4. TEMAZEPAM. [Concomitant]
     Active Substance: TEMAZEPAM
  5. AMANTADINE [Concomitant]
     Active Substance: AMANTADINE
  6. FLUORODEOXYGLUCOSE 18F [Concomitant]
  7. MELATONIN [Concomitant]
     Active Substance: MELATONIN
  8. BENZTROPINE MESYLATE. [Concomitant]
     Active Substance: BENZTROPINE MESYLATE
  9. XYREM [Suspect]
     Active Substance: SODIUM OXYBATE
     Dosage: DOSE ADJUSTMENTS
     Route: 048
     Dates: start: 201605, end: 201606
  10. XYREM [Suspect]
     Active Substance: SODIUM OXYBATE
     Dosage: 4.5 G, BID
     Route: 048
     Dates: start: 201606
  11. XANAX [Concomitant]
     Active Substance: ALPRAZOLAM
  12. CORTEF [Concomitant]
     Active Substance: HYDROCORTISONE
  13. FENTANYL. [Concomitant]
     Active Substance: FENTANYL
  14. SONATA [Concomitant]
     Active Substance: ZALEPLON
  15. VITAMIN D3 [Concomitant]
     Active Substance: CHOLECALCIFEROL
  16. LIDOCAINE HCL [Concomitant]
     Active Substance: LIDOCAINE HYDROCHLORIDE
  17. LYRICA [Concomitant]
     Active Substance: PREGABALIN
  18. TOPAMAX [Concomitant]
     Active Substance: TOPIRAMATE
  19. FOLIC ACID. [Concomitant]
     Active Substance: FOLIC ACID
  20. MULTIVITAMINS [Concomitant]
     Active Substance: VITAMINS
  21. XYREM [Suspect]
     Active Substance: SODIUM OXYBATE
     Indication: INSOMNIA
     Dosage: 2.25 G, BID
     Route: 048
     Dates: start: 201605, end: 201605
  22. VITAMIN B12 [Concomitant]
     Active Substance: CYANOCOBALAMIN
  23. REMERON [Concomitant]
     Active Substance: MIRTAZAPINE
  24. SEROQUEL [Concomitant]
     Active Substance: QUETIAPINE FUMARATE
  25. CYANOCOBALAMIN. [Concomitant]
     Active Substance: CYANOCOBALAMIN
  26. SODIUM CHLORIDE. [Concomitant]
     Active Substance: SODIUM CHLORIDE
  27. HALOPERIDOL DECANOATE. [Concomitant]
     Active Substance: HALOPERIDOL DECANOATE
  28. NICORETTE [Concomitant]
     Active Substance: NICOTINE
  29. SOMA [Concomitant]
     Active Substance: CARISOPRODOL
  30. BIOTIN [Concomitant]
     Active Substance: BIOTIN

REACTIONS (3)
  - Irregular breathing [Recovered/Resolved]
  - Emotional disorder [Unknown]
  - Unevaluable event [Unknown]

NARRATIVE: CASE EVENT DATE: 2016
